FAERS Safety Report 12551833 (Version 2)
Quarter: 2016Q3

REPORT INFORMATION
  Report Type: Spontaneous
  Country: US (occurrence: US)
  Receive Date: 20160713
  Receipt Date: 20160719
  Transmission Date: 20161109
  Serious: Yes (Life-Threatening, Hospitalization, Other)
  Sender: FDA-Public Use
  Company Number: US-SUN PHARMACEUTICAL INDUSTRIES LTD-2016US-120073

PATIENT
  Age: 40 Year
  Sex: Male

DRUGS (5)
  1. AVASTIN [Suspect]
     Active Substance: BEVACIZUMAB
     Indication: COLORECTAL CANCER
     Dosage: 7.5 MG/KG, EVERY 3 WEEKS
     Route: 042
  2. CALCIUM FOLINAT [Suspect]
     Active Substance: LEUCOVORIN CALCIUM
     Indication: COLORECTAL CANCER
     Dosage: 400 MG/M2, CYCLICAL (OVER 2 H ON DAY 1; CYCLE REPEATED EVERY 14 DAYS)
     Route: 042
  3. FLUOROURACIL. [Suspect]
     Active Substance: FLUOROURACIL
     Indication: COLORECTAL CANCER
     Dosage: 2400 MG/M2, CYCLICAL (CONTINUOUS INFUSION OVER 46 H BEGINNING ON DAY 1; CYCLE REPEATED EVERY 14DAYS)
     Route: 042
  4. IRINOTECAN [Suspect]
     Active Substance: IRINOTECAN
     Indication: COLORECTAL CANCER
     Dosage: 180 MG/M2, CYCLICAL (OVER 90 MIN ON DAY 1; CYCLE REPEATED EVERY 14 DAYS)
     Route: 042
  5. FLUOROURACIL. [Suspect]
     Active Substance: FLUOROURACIL
     Indication: COLORECTAL CANCER
     Dosage: 400 MG/M2, CYCLICAL (ON DAY 1; CYCLE REPEATED EVERY 14 DAYS)
     Route: 040

REACTIONS (4)
  - Vomiting [Recovered/Resolved]
  - Hyperammonaemic encephalopathy [Recovered/Resolved]
  - Toxic encephalopathy [Recovered/Resolved]
  - Nausea [Recovered/Resolved]

NARRATIVE: CASE EVENT DATE: 20150511
